FAERS Safety Report 5532517-0 (Version None)
Quarter: 2007Q4

REPORT INFORMATION
  Report Type: 
  Country: None (occurrence: None)
  Receive Date: 20071203
  Receipt Date: 20071121
  Transmission Date: 20080405
  Serious: Yes (Other)
  Sender: FDA-Public Use
  Company Number: US-PFIZER INC-2007100279

PATIENT
  Sex: Female
  Weight: 50.909 kg

DRUGS (2)
  1. CHANTIX [Suspect]
     Indication: SMOKING CESSATION THERAPY
     Route: 048
     Dates: start: 20070923, end: 20071001
  2. SYNTHROID [Concomitant]
     Indication: THYROID DISORDER

REACTIONS (3)
  - ACTIVITIES OF DAILY LIVING IMPAIRED [None]
  - FEELING ABNORMAL [None]
  - UNEVALUABLE EVENT [None]
